FAERS Safety Report 8552295-0 (Version None)
Quarter: 2012Q3

REPORT INFORMATION
  Report Type: 
  Country: None (occurrence: None)
  Receive Date: 20120718
  Receipt Date: 20120703
  Transmission Date: 20120928
  Serious: Yes (Life-Threatening, Hospitalization, Other)
  Sender: FDA-Public Use
  Company Number: DSJ-2012-12209

PATIENT
  Age: 81 Year
  Sex: Male

DRUGS (17)
  1. OLMESARTAN MEDOXOMIL [Suspect]
     Indication: HYPERTENSION
     Dosage: ONCE (40 MG, 1 IN 1 D), PER ORAL
     Route: 048
     Dates: end: 20120501
  2. JUVELA (TOCOPHERYL ACETATE) (TOCOPHERYL ACETATE) [Concomitant]
  3. NITROL (GLYCERYL TRINITRATE) (GLYCERYL TRINITRATE) [Concomitant]
  4. FRANDOL (ISOSORBIDE DINITRATE) (POULTICE OR PATCH) (ISOSORBIDE DINITRA [Concomitant]
  5. FEBURIC [Concomitant]
  6. RASILEZ (ALISKIREN) (ALISKIREN) [Suspect]
     Indication: HYPERTENSION
     Dosage: ONCE (150 MG, 1 IN 1 D), UNKNOWN
     Dates: end: 20120501
  7. CARVEDILOL [Concomitant]
  8. OMEPRAL (OMEPRAZOLE) (OMEPRAZOLE) [Concomitant]
  9. MAGMITT (MAGNESIUM OXIDE) (MAGNESIUM OXIDE) [Concomitant]
  10. LYRICA [Suspect]
     Indication: SCIATICA
     Dosage: 150 MG (75 MG, 2 IN 1 D), ORAL
     Route: 048
     Dates: start: 20120424, end: 20120428
  11. EPLERENONE [Suspect]
     Indication: HYPERTENSION
     Dosage: ONCE (50 MG, 1 IN 1 D), PER ORAL
     Route: 048
     Dates: end: 20120501
  12. PLAVIX [Concomitant]
  13. HERBESSER R (DILTIAZEM HYDROCHLORIDE) (DILTIAZEM HYDROCHLORIDE) [Concomitant]
  14. SYMBICORT (FORMOTEROL FUMARATE, BUDESONIDE) (FORMOTEROL FUMARATE, BUDE [Concomitant]
  15. DORNER (BERAPROST SODIUM) (BERAPROST SODIUM) [Concomitant]
  16. FERRUM (DEXTRIFERRON) (DEXTRIFERRON) [Concomitant]
  17. CLARITIN (GLICLAZIDE) (GLICLAZIDE) [Concomitant]

REACTIONS (5)
  - BLOOD POTASSIUM INCREASED [None]
  - ANURIA [None]
  - HAEMODIALYSIS [None]
  - NODAL RHYTHM [None]
  - RENAL DISORDER [None]
